FAERS Safety Report 12454512 (Version 1)
Quarter: 2016Q2

REPORT INFORMATION
  Report Type: Spontaneous
  Country: US (occurrence: None)
  Receive Date: 20160609
  Receipt Date: 20160609
  Transmission Date: 20160815
  Serious: No
  Sender: FDA-Public Use
  Company Number: None

PATIENT
  Age: 5 Year
  Sex: Male
  Weight: 17.69 kg

DRUGS (4)
  1. VITAMIN [Concomitant]
     Active Substance: VITAMINS
  2. EQUATE IBUPROFEN CHILDRENS [Suspect]
     Active Substance: IBUPROFEN
     Indication: EAR PAIN
     Route: 048
     Dates: start: 20160607, end: 20160607
  3. PROBIOTIC [Concomitant]
     Active Substance: PROBIOTICS NOS
  4. FIBER SUPPLEMENT [Concomitant]

REACTIONS (3)
  - Product physical issue [None]
  - Vomiting [None]
  - Product odour abnormal [None]

NARRATIVE: CASE EVENT DATE: 20160607
